FAERS Safety Report 8125188-0 (Version None)
Quarter: 2012Q1

REPORT INFORMATION
  Report Type: 
  Country: None (occurrence: None)
  Receive Date: 20120209
  Receipt Date: 20120206
  Transmission Date: 20120608
  Serious: Yes (Other)
  Sender: FDA-Public Use
  Company Number: US-ALEXION-A201200013

PATIENT
  Sex: Male

DRUGS (8)
  1. PRILOSEC [Concomitant]
     Dosage: 40 MG, UNK
  2. IRON W/FOLIC ACID [Concomitant]
     Dosage: UNK
  3. LANTUS [Concomitant]
     Dosage: UNK
  4. PREDNISONE [Concomitant]
     Dosage: 10 MG, UNK
  5. RESTORIL [Concomitant]
     Dosage: 30 MG, UNK
  6. CARTIA XT [Concomitant]
     Dosage: 180 MG, UNK
  7. SOLIRIS [Suspect]
     Indication: PAROXYSMAL NOCTURNAL HAEMOGLOBINURIA
     Dosage: 900 MG, Q2W
     Route: 042
     Dates: start: 20070831
  8. DRISDOL [Concomitant]
     Dosage: 5000 IU, UNK

REACTIONS (4)
  - ABDOMINAL PAIN [None]
  - VOMITING [None]
  - PANCREATIC MASS [None]
  - NAUSEA [None]
